FAERS Safety Report 6807303-1 (Version None)
Quarter: 2010Q2

REPORT INFORMATION
  Report Type: 
  Country: None (occurrence: None)
  Receive Date: 20100629
  Receipt Date: 20080821
  Transmission Date: 20101027
  Serious: No
  Sender: FDA-Public Use
  Company Number: US-PFIZER INC-2008064233

PATIENT
  Sex: Male
  Weight: 73.48 kg

DRUGS (6)
  1. TIKOSYN [Suspect]
     Indication: ATRIAL FIBRILLATION
     Dates: start: 20080530
  2. CARDIZEM [Suspect]
     Indication: ATRIAL FIBRILLATION
     Dates: start: 20080401, end: 20080715
  3. BUFFERIN [Concomitant]
  4. KLONOPIN [Concomitant]
  5. VITAMINS [Concomitant]
  6. MINERALS NOS [Concomitant]

REACTIONS (2)
  - ATRIAL FIBRILLATION [None]
  - ORAL INFECTION [None]
